FAERS Safety Report 24831831 (Version 1)
Quarter: 2025Q1

REPORT INFORMATION
  Report Type: Spontaneous
  Country: US (occurrence: US)
  Receive Date: 20250110
  Receipt Date: 20250110
  Transmission Date: 20250409
  Serious: No
  Sender: BAYER HEALTHCARE PHARMACEUTICALS INC.
  Company Number: US-BAYER-2025A002717

PATIENT
  Age: 41 Year
  Sex: Female

DRUGS (2)
  1. GADAVIST [Suspect]
     Active Substance: GADOBUTROL
     Indication: Magnetic resonance imaging
     Dates: start: 20241219, end: 20241219
  2. CROMOLYN SODIUM [Concomitant]
     Active Substance: CROMOLYN SODIUM

REACTIONS (8)
  - Fluid retention [None]
  - Migraine [None]
  - Urine output decreased [None]
  - Brain fog [None]
  - Irritability [None]
  - Abdominal distension [None]
  - Constipation [None]
  - Gastrointestinal mucosal disorder [None]

NARRATIVE: CASE EVENT DATE: 20241223
